FAERS Safety Report 10803509 (Version 4)
Quarter: 2015Q3

REPORT INFORMATION
  Report Type: Spontaneous
  Country: US (occurrence: US)
  Receive Date: 20150217
  Receipt Date: 20150928
  Transmission Date: 20151125
  Serious: Yes (Other)
  Sender: FDA-Public Use
  Company Number: US-GLAXOSMITHKLINE-US2015000743

PATIENT
  Age: 55 Year
  Sex: Male

DRUGS (2)
  1. LISINOPRIL. [Concomitant]
     Active Substance: LISINOPRIL
     Dosage: UNK
     Route: 065
  2. VOTRIENT [Suspect]
     Active Substance: PAZOPANIB HYDROCHLORIDE
     Indication: RENAL CANCER METASTATIC
     Dosage: 800 MG, QD
     Route: 048
     Dates: start: 20131112, end: 20150116

REACTIONS (12)
  - Blindness transient [Unknown]
  - Treatment failure [Unknown]
  - Ischaemia [Unknown]
  - Therapeutic response decreased [Not Recovered/Not Resolved]
  - Orthopnoea [Unknown]
  - Renal impairment [Unknown]
  - Rash [Unknown]
  - Dyspnoea [Unknown]
  - Hemianopia [Unknown]
  - Hypotension [Unknown]
  - Disease progression [Unknown]
  - Fluid overload [Unknown]

NARRATIVE: CASE EVENT DATE: 201411
